FAERS Safety Report 19591568 (Version 2)
Quarter: 2021Q3

REPORT INFORMATION
  Report Type: Spontaneous
  Country: BR (occurrence: BR)
  Receive Date: 20210721
  Receipt Date: 20210805
  Transmission Date: 20211014
  Serious: Yes (Other)
  Sender: FDA-Public Use
  Company Number: NVSC2021BR162612

PATIENT
  Sex: Female

DRUGS (2)
  1. RIVOTRIL [Concomitant]
     Active Substance: CLONAZEPAM
     Indication: NERVOUS SYSTEM DISORDER
     Dosage: 3 DROPS IN THE MORNING AND 3 DROPS IN THE EVENING, QD
     Route: 048
     Dates: start: 2015
  2. TEGRETOL [Suspect]
     Active Substance: CARBAMAZEPINE
     Indication: EPILEPSY
     Dosage: 55 ML, QD (ABOUT 5 YEARS (20ML IN THE MORNING, 15 ML IN THE AFTERNOON AND 20 ML AT NIGHT), QD)
     Route: 048
     Dates: start: 2015

REACTIONS (1)
  - Diabetes mellitus [Not Recovered/Not Resolved]

NARRATIVE: CASE EVENT DATE: 2018
